FAERS Safety Report 6337321-1 (Version None)
Quarter: 2009Q3

REPORT INFORMATION
  Report Type: 
  Country: None (occurrence: None)
  Receive Date: 20090828
  Receipt Date: 20090828
  Transmission Date: 20100115
  Serious: No
  Sender: FDA-Public Use
  Company Number: None

PATIENT
  Age: 44 Year
  Sex: Female
  Weight: 106.5953 kg

DRUGS (2)
  1. METOCLOPRAMIDE [Suspect]
     Indication: GASTROOESOPHAGEAL REFLUX DISEASE
     Dosage: 10MG ONCE IN THE ER IV BOLUS
     Route: 040
     Dates: start: 20090721, end: 20090721
  2. METOCLOPRAMIDE [Suspect]
     Indication: IMPAIRED GASTRIC EMPTYING
     Dosage: 10MG FOUR TIMES A DAY PO
     Route: 048
     Dates: start: 20090721, end: 20090725

REACTIONS (11)
  - AGITATION [None]
  - ANXIETY [None]
  - DYSKINESIA [None]
  - FLUSHING [None]
  - HYPERHIDROSIS [None]
  - IMPAIRED GASTRIC EMPTYING [None]
  - LIP DISORDER [None]
  - MUSCLE TWITCHING [None]
  - MYOCARDIAL INFARCTION [None]
  - RESTLESSNESS [None]
  - THINKING ABNORMAL [None]
